FAERS Safety Report 7852607-7 (Version None)
Quarter: 2011Q4

REPORT INFORMATION
  Report Type: 
  Country: None (occurrence: None)
  Receive Date: 20111026
  Receipt Date: 20110930
  Transmission Date: 20120403
  Serious: Yes (Hospitalization)
  Sender: FDA-Public Use
  Company Number: US-GLAXOSMITHKLINE-A0946822A

PATIENT
  Age: 63 Year
  Sex: Female
  Weight: 50 kg

DRUGS (15)
  1. DIGOXIN [Concomitant]
  2. SPIRIVA [Concomitant]
  3. PROVENTIL-HFA [Concomitant]
  4. VITAMIN D [Concomitant]
  5. PROMETHAZINE [Concomitant]
  6. COUMADIN [Concomitant]
  7. POTASSIUM [Concomitant]
  8. FLOLAN [Suspect]
     Indication: PULMONARY ARTERIAL HYPERTENSION
     Dosage: 68NGKM UNKNOWN
     Route: 065
     Dates: start: 20100527
  9. WELLBUTRIN SR [Concomitant]
  10. ALENDRONATE SODIUM [Concomitant]
  11. SYMBICORT [Concomitant]
  12. LASIX [Concomitant]
  13. GABAPENTIN [Concomitant]
  14. XANAX [Concomitant]
  15. IMODIUM [Concomitant]

REACTIONS (3)
  - OEDEMA PERIPHERAL [None]
  - PAIN [None]
  - PNEUMONIA [None]
